FAERS Safety Report 11580622 (Version 1)
Quarter: 2015Q3

REPORT INFORMATION
  Report Type: Spontaneous
  Country: US (occurrence: US)
  Receive Date: 20150930
  Receipt Date: 20150930
  Transmission Date: 20151125
  Serious: No
  Sender: FDA-Public Use
  Company Number: PHEH2015US018672

PATIENT
  Sex: Male

DRUGS (2)
  1. COSENTYX [Suspect]
     Active Substance: SECUKINUMAB
     Indication: PSORIASIS
     Dosage: UNK UKN, QW
     Route: 065
     Dates: start: 20150523
  2. COSENTYX [Suspect]
     Active Substance: SECUKINUMAB
     Dosage: UNK UKN, QMO
     Route: 065

REACTIONS (1)
  - Psoriasis [Unknown]
